FAERS Safety Report 19856955 (Version 1)
Quarter: 2021Q3

REPORT INFORMATION
  Report Type: Spontaneous
  Country: GB (occurrence: GB)
  Receive Date: 20210920
  Receipt Date: 20210920
  Transmission Date: 20211014
  Serious: Yes (Other)
  Sender: FDA-Public Use
  Company Number: GB-MYLANLABS-2021M1062887

PATIENT
  Age: 61 Year
  Sex: Female
  Weight: 66 kg

DRUGS (1)
  1. BUPRENORPHINE. [Suspect]
     Active Substance: BUPRENORPHINE
     Indication: RESTLESS LEGS SYNDROME
     Dosage: 0.3 MILLIGRAM
     Route: 048
     Dates: start: 20210604

REACTIONS (3)
  - Vomiting [Unknown]
  - Nausea [Recovered/Resolved]
  - Hypophagia [Unknown]

NARRATIVE: CASE EVENT DATE: 20210604
